FAERS Safety Report 18034358 (Version 3)
Quarter: 2020Q3

REPORT INFORMATION
  Report Type: Spontaneous
  Country: CN (occurrence: CN)
  Receive Date: 20200716
  Receipt Date: 20200818
  Transmission Date: 20201103
  Serious: Yes (Hospitalization, Other)
  Sender: FDA-Public Use
  Company Number: CN-SA-2020SA180528

PATIENT

DRUGS (1)
  1. PLAVIX [Suspect]
     Active Substance: CLOPIDOGREL BISULFATE
     Indication: VASCULAR GRAFT
     Dosage: 75 MG, QD
     Route: 048
     Dates: start: 2018

REACTIONS (3)
  - Angina pectoris [Not Recovered/Not Resolved]
  - Suspected product quality issue [Unknown]
  - Angina pectoris [Unknown]

NARRATIVE: CASE EVENT DATE: 20200705
